FAERS Safety Report 8428575-6 (Version None)
Quarter: 2012Q2

REPORT INFORMATION
  Report Type: 
  Country: None (occurrence: None)
  Receive Date: 20120606
  Receipt Date: 20120606
  Transmission Date: 20120825
  Serious: Yes (Life-Threatening, Other)
  Sender: FDA-Public Use
  Company Number: None

PATIENT
  Age: 63 Year
  Sex: Female
  Weight: 72.5755 kg

DRUGS (2)
  1. DEXTROAMPHETAMINE [Suspect]
     Indication: CHRONIC FATIGUE SYNDROME
     Dosage: 15MG 3TIMES DAILY BUCCAL
     Route: 002
     Dates: start: 20120407, end: 20120603
  2. DEXTROAMPHETAMINE [Suspect]
     Indication: ATTENTION DEFICIT/HYPERACTIVITY DISORDER
     Dosage: 15MG 3TIMES DAILY BUCCAL
     Route: 002
     Dates: start: 20120407, end: 20120603

REACTIONS (10)
  - PALPITATIONS [None]
  - BLOOD PRESSURE INCREASED [None]
  - PRODUCT QUALITY ISSUE [None]
  - PRODUCT SUBSTITUTION ISSUE [None]
  - DRUG INEFFECTIVE [None]
  - PRODUCT FORMULATION ISSUE [None]
  - DYSPHORIA [None]
  - NERVOUSNESS [None]
  - DISTURBANCE IN ATTENTION [None]
  - PSYCHOSOMATIC DISEASE [None]
